FAERS Safety Report 8197198-9 (Version None)
Quarter: 2012Q1

REPORT INFORMATION
  Report Type: 
  Country: None (occurrence: None)
  Receive Date: 20120309
  Receipt Date: 20120229
  Transmission Date: 20120608
  Serious: Yes (Other)
  Sender: FDA-Public Use
  Company Number: JP-JNJFOC-20120301825

PATIENT
  Age: 67 Year
  Sex: Female
  Weight: 53 kg

DRUGS (16)
  1. REMICADE [Suspect]
     Route: 042
     Dates: start: 20110902
  2. PURSENNID [Concomitant]
  3. ASACOL [Concomitant]
     Indication: COLITIS ULCERATIVE
     Route: 048
     Dates: start: 20110701
  4. IMMUNOMODULATOR [Concomitant]
     Indication: COLITIS ULCERATIVE
  5. REMICADE [Suspect]
     Route: 042
     Dates: start: 20111028
  6. REMICADE [Suspect]
     Route: 042
     Dates: start: 20110722
  7. REMICADE [Suspect]
     Route: 042
     Dates: start: 20110805
  8. BIO-THREE [Concomitant]
     Indication: COLITIS ULCERATIVE
     Dosage: 3 TABS
     Route: 048
  9. PENTASA [Concomitant]
     Indication: COLITIS ULCERATIVE
     Route: 048
     Dates: start: 20110630
  10. ZOLPIDEM [Concomitant]
     Indication: INSOMNIA
     Route: 048
  11. CALCITRIOL [Concomitant]
     Indication: OSTEOPOROSIS
     Dosage: .5 MCG
     Route: 048
  12. MUCOSTA [Concomitant]
     Indication: COLITIS ULCERATIVE
     Route: 048
  13. REMICADE [Suspect]
     Indication: COLITIS ULCERATIVE
     Route: 042
     Dates: start: 20111226
  14. PREDNISOLONE [Concomitant]
     Indication: COLITIS ULCERATIVE
     Route: 048
     Dates: start: 20110601, end: 20110722
  15. RABEPRAZOLE SODIUM [Concomitant]
     Indication: COLITIS ULCERATIVE
     Route: 048
     Dates: end: 20110902
  16. PREDNISOLONE [Concomitant]
     Route: 048
     Dates: start: 20110723, end: 20110804

REACTIONS (1)
  - HERPES ZOSTER [None]
